FAERS Safety Report 15680495 (Version 1)
Quarter: 2018Q4

REPORT INFORMATION
  Report Type: Spontaneous
  Country: US (occurrence: US)
  Receive Date: 20181120
  Receipt Date: 20181120
  Transmission Date: 20190205
  Serious: No
  Sender: FDA-Public Use
  Company Number: None

PATIENT
  Age: 53 Year
  Sex: Male

DRUGS (1)
  1. VEMLIDY [Suspect]
     Active Substance: TENOFOVIR ALAFENAMIDE FUMARATE
     Route: 048
     Dates: start: 201809

REACTIONS (4)
  - Pollakiuria [None]
  - Musculoskeletal pain [None]
  - Arthralgia [None]
  - Therapy change [None]

NARRATIVE: CASE EVENT DATE: 20181119
